FAERS Safety Report 4766022-6 (Version None)
Quarter: 2005Q3

REPORT INFORMATION
  Report Type: 
  Country: None (occurrence: None)
  Receive Date: 20050912
  Receipt Date: 20050629
  Transmission Date: 20060218
  Serious: Yes (Other)
  Sender: FDA-Public Use
  Company Number: GB-GLAXOSMITHKLINE-B0386600A

PATIENT
  Sex: Male

DRUGS (1)
  1. SEROXAT [Suspect]
     Indication: PANIC ATTACK
     Route: 065
     Dates: start: 20020101

REACTIONS (3)
  - COMPLETED SUICIDE [None]
  - DISTURBANCE IN ATTENTION [None]
  - PARAESTHESIA [None]
